FAERS Safety Report 4848039-6 (Version None)
Quarter: 2005Q4

REPORT INFORMATION
  Report Type: 
  Country: None (occurrence: None)
  Receive Date: 20051206
  Receipt Date: 20051118
  Transmission Date: 20060501
  Serious: Yes (Hospitalization)
  Sender: FDA-Public Use
  Company Number: DE200511001194

PATIENT
  Age: 65 Year
  Sex: Male

DRUGS (5)
  1. GEMZAR [Suspect]
     Indication: PANCREATIC CARCINOMA
     Dosage: SEE IMAGE
     Route: 042
     Dates: start: 20051001, end: 20051001
  2. GEMZAR [Suspect]
     Indication: PANCREATIC CARCINOMA
     Dosage: SEE IMAGE
     Route: 042
     Dates: start: 20051001, end: 20051001
  3. GEMZAR [Suspect]
     Indication: PANCREATIC CARCINOMA
     Dosage: SEE IMAGE
     Route: 042
     Dates: start: 20051101, end: 20051101
  4. ACERCOMP (HYDROCHLOROTHIAZIDE, LISINOPRIL) [Concomitant]
  5. MODURETIK (AMILORIDE HYDROCHLORIDE, HYDROCOROTHIAZIED) [Concomitant]

REACTIONS (10)
  - BRAIN OEDEMA [None]
  - CATARACT [None]
  - CEREBRAL VASOCONSTRICTION [None]
  - CEREBROVASCULAR DISORDER [None]
  - CHILLS [None]
  - COMA [None]
  - INFLAMMATION [None]
  - METASTASES TO CENTRAL NERVOUS SYSTEM [None]
  - MYALGIA [None]
  - PYREXIA [None]
